FAERS Safety Report 11148137 (Version 5)
Quarter: 2015Q3

REPORT INFORMATION
  Report Type: Report from Study
  Country: US (occurrence: US)
  Receive Date: 20150529
  Receipt Date: 20150902
  Transmission Date: 20151125
  Serious: Yes (Hospitalization, Other)
  Sender: FDA-Public Use
  Company Number: US-BIOGENIDEC-2015BI070703

PATIENT
  Age: 55 Year
  Sex: Female

DRUGS (3)
  1. PLEGRIDY [Suspect]
     Active Substance: PEGINTERFERON BETA-1A
     Indication: MULTIPLE SCLEROSIS
     Route: 058
     Dates: start: 20150320, end: 20150320
  2. PLEGRIDY [Suspect]
     Active Substance: PEGINTERFERON BETA-1A
     Indication: MULTIPLE SCLEROSIS
     Route: 058
     Dates: start: 20150417, end: 20150520
  3. PLEGRIDY [Suspect]
     Active Substance: PEGINTERFERON BETA-1A
     Indication: MULTIPLE SCLEROSIS
     Route: 058
     Dates: start: 20150403, end: 20150403

REACTIONS (14)
  - Vomiting [Unknown]
  - Toxicity to various agents [Unknown]
  - Mobility decreased [Unknown]
  - Nausea [Unknown]
  - Blood potassium decreased [Recovered/Resolved]
  - Weight decreased [Not Recovered/Not Resolved]
  - Abasia [Recovered/Resolved]
  - Diarrhoea [Unknown]
  - Abdominal pain [Unknown]
  - Dehydration [Recovered/Resolved]
  - Depression [Unknown]
  - Pneumonia [Not Recovered/Not Resolved]
  - Blood calcium decreased [Unknown]
  - Back disorder [Unknown]

NARRATIVE: CASE EVENT DATE: 201503
